FAERS Safety Report 4877657-4 (Version None)
Quarter: 2006Q1

REPORT INFORMATION
  Report Type: 
  Country: None (occurrence: None)
  Receive Date: 20060111
  Receipt Date: 20050217
  Transmission Date: 20060701
  Serious: Yes (Other)
  Sender: FDA-Public Use
  Company Number: PHBS2005IT02559

PATIENT
  Age: 63 Year
  Sex: Female

DRUGS (8)
  1. ZOLEDRONIC ACID [Suspect]
     Indication: BREAST CANCER
     Dosage: UNK, UNK
     Route: 042
  2. ELLENCE [Concomitant]
     Route: 065
  3. TAXANES [Concomitant]
     Route: 065
  4. VINCA ALKALOIDS AND ANALOGUES [Concomitant]
     Route: 065
  5. ANTIMETABOLITES [Concomitant]
     Route: 065
  6. PLATINUM COMPOUNDS [Concomitant]
     Route: 065
  7. TRASTUZUMAB [Concomitant]
     Route: 065
  8. STEROIDS NOS [Concomitant]
     Route: 065

REACTIONS (4)
  - EXCESSIVE GRANULATION TISSUE [None]
  - FUNGAL INFECTION [None]
  - OSTEONECROSIS [None]
  - WOUND DEBRIDEMENT [None]
